FAERS Safety Report 18544107 (Version 1)
Quarter: 2020Q4

REPORT INFORMATION
  Report Type: Report from Study
  Country: FR (occurrence: FR)
  Receive Date: 20201125
  Receipt Date: 20201125
  Transmission Date: 20210114
  Serious: Yes (Death, Hospitalization, Other)
  Sender: FDA-Public Use
  Company Number: FR-AUROBINDO-AUR-APL-2017-10790

PATIENT

DRUGS (2)
  1. DISOPYRAMIDE [Suspect]
     Active Substance: DISOPYRAMIDE
     Indication: PRODUCT USED FOR UNKNOWN INDICATION
     Dosage: 10 GRAM
     Route: 065
  2. ALPRAZOLAM. [Suspect]
     Active Substance: ALPRAZOLAM
     Indication: PRODUCT USED FOR UNKNOWN INDICATION
     Dosage: 10 MILLIGRAM
     Route: 065

REACTIONS (15)
  - Shock [Fatal]
  - Thrombosis [Fatal]
  - Vena cava thrombosis [Fatal]
  - Mechanical ventilation [Fatal]
  - Organ failure [Fatal]
  - Overdose [Fatal]
  - Haemorrhage [Fatal]
  - Ischaemic limb pain [Fatal]
  - Acute kidney injury [Fatal]
  - Coma [Fatal]
  - Multiple organ dysfunction syndrome [Fatal]
  - Death [Fatal]
  - Brain death [Fatal]
  - Cardiac arrest [Fatal]
  - Accidental poisoning [Fatal]
